FAERS Safety Report 6071456-6 (Version None)
Quarter: 2009Q1

REPORT INFORMATION
  Report Type: 
  Country: None (occurrence: None)
  Receive Date: 20090204
  Receipt Date: 20081104
  Transmission Date: 20090719
  Serious: Yes (Hospitalization)
  Sender: FDA-Public Use
  Company Number: 595268

PATIENT
  Age: 68 Year
  Sex: Female

DRUGS (6)
  1. BONIVA [Suspect]
     Indication: DRUG USE FOR UNKNOWN INDICATION
     Dosage: 1 PER 3 MONTH INTRAVENOUS
     Route: 042
     Dates: start: 20070701, end: 20080801
  2. FOLIC ACID [Concomitant]
  3. MULTIVITAMIN [Concomitant]
  4. VITAMIN E (ALPHA-TOCOPHEROL) [Concomitant]
  5. REMICADE [Concomitant]
  6. METHOTREXATE [Concomitant]

REACTIONS (1)
  - GASTROOESOPHAGEAL REFLUX DISEASE [None]
